FAERS Safety Report 5050806-3 (Version None)
Quarter: 2006Q3

REPORT INFORMATION
  Report Type: 
  Country: None (occurrence: None)
  Receive Date: 20060710
  Receipt Date: 20060626
  Transmission Date: 20061208
  Serious: Yes (Other)
  Sender: FDA-Public Use
  Company Number: GXKR2006GB03698

PATIENT
  Age: 29 Year
  Sex: Female

DRUGS (2)
  1. GABAPENTIN [Suspect]
     Dosage: 800 MG, TID, ORAL
     Route: 048
     Dates: start: 19980101
  2. CLONAZEPAM [Concomitant]

REACTIONS (3)
  - FALL [None]
  - SENSORY LOSS [None]
  - THERMAL BURN [None]
